FAERS Safety Report 13946234 (Version 4)
Quarter: 2019Q3

REPORT INFORMATION
  Report Type: Report from Study
  Country: US (occurrence: US)
  Receive Date: 20170907
  Receipt Date: 20190822
  Transmission Date: 20191004
  Serious: Yes (Hospitalization, Other)
  Sender: FDA-Public Use
  Company Number: US-EXELIXIS-XL18417010381

PATIENT
  Age: 17 Year
  Sex: Male
  Weight: 54.7 kg

DRUGS (1)
  1. XL184 [Suspect]
     Active Substance: CABOZANTINIB
     Indication: HEPATOCELLULAR CARCINOMA
     Dosage: 40 MG/M2, QD
     Route: 048
     Dates: start: 20170728

REACTIONS (10)
  - Anaemia [Unknown]
  - Blood alkaline phosphatase increased [Unknown]
  - Alanine aminotransferase increased [Unknown]
  - Pyrexia [Recovered/Resolved]
  - Hypotension [Unknown]
  - Colitis [Unknown]
  - Aspartate aminotransferase increased [Unknown]
  - Hyponatraemia [Unknown]
  - Blood bilirubin increased [Recovering/Resolving]
  - Sepsis [Recovering/Resolving]

NARRATIVE: CASE EVENT DATE: 20170818
